FAERS Safety Report 23953147 (Version 1)
Quarter: 2024Q2

REPORT INFORMATION
  Report Type: Report from Study
  Country: US (occurrence: US)
  Receive Date: 20240608
  Receipt Date: 20240608
  Transmission Date: 20240716
  Serious: Yes (Life-Threatening, Other)
  Sender: FDA-Public Use
  Company Number: US-AUROBINDO-AUR-APL-2024-027581

PATIENT
  Age: 72 Year
  Sex: Male

DRUGS (4)
  1. DROXIDOPA [Suspect]
     Active Substance: DROXIDOPA
     Indication: Orthostatic hypotension
     Dosage: 100 MILLIGRAM, TWO TIMES A DAY
     Route: 065
  2. DROXIDOPA [Suspect]
     Active Substance: DROXIDOPA
     Dosage: 200 MILLIGRAM, TWO TIMES A DAY (AFTER 48 HOURS)
     Route: 065
  3. DROXIDOPA [Suspect]
     Active Substance: DROXIDOPA
     Dosage: 200MG EVERY MORNING AND 100MG EVERY EVENING
     Route: 065
  4. RITUXIMAB [Concomitant]
     Active Substance: RITUXIMAB
     Indication: Autoimmune neuropathy
     Dosage: UNK
     Route: 065

REACTIONS (5)
  - Hypertensive crisis [Recovered/Resolved]
  - Irritability [Recovered/Resolved]
  - Anger [Recovered/Resolved]
  - Anxiety [Recovered/Resolved]
  - Memory impairment [Recovered/Resolved]
